FAERS Safety Report 13962044 (Version 1)
Quarter: 2017Q3

REPORT INFORMATION
  Report Type: Spontaneous
  Country: US (occurrence: US)
  Receive Date: 20170912
  Receipt Date: 20170912
  Transmission Date: 20171128
  Serious: No
  Sender: FDA-Public Use
  Company Number: US-ACTELION-A-NJ2017-159258

PATIENT
  Age: 59 Year
  Sex: Female

DRUGS (2)
  1. VALCHLOR [Suspect]
     Active Substance: MECHLORETHAMINE
     Indication: MYCOSIS FUNGOIDES
     Dosage: UNK
     Route: 061
     Dates: start: 20170210
  2. ARNICA [Concomitant]
     Active Substance: ARNICA MONTANA FLOWER
     Dosage: LG LIQUID

REACTIONS (1)
  - Urticaria [Unknown]
